FAERS Safety Report 6793328-1 (Version None)
Quarter: 2010Q2

REPORT INFORMATION
  Report Type: 
  Country: None (occurrence: None)
  Receive Date: 20100624
  Receipt Date: 20100122
  Transmission Date: 20101027
  Serious: Yes (Other)
  Sender: FDA-Public Use
  Company Number: US-MYLANLABS-2009S1020562

PATIENT
  Age: 87 Year
  Sex: Female
  Weight: 49.9 kg

DRUGS (11)
  1. CLOZAPINE [Suspect]
     Indication: PSYCHOTIC DISORDER
     Route: 048
     Dates: start: 20080405
  2. CLOZAPINE [Suspect]
     Indication: SCHIZOPHRENIA, PARANOID TYPE
     Route: 048
     Dates: start: 20080405
  3. CLOZAPINE [Suspect]
     Route: 048
     Dates: end: 20091127
  4. CLOZAPINE [Suspect]
     Route: 048
     Dates: end: 20091127
  5. FENTANYL-100 [Concomitant]
     Route: 062
  6. MIRALAX [Concomitant]
     Route: 048
  7. K-DUR [Concomitant]
     Route: 048
  8. VICODIN [Concomitant]
     Dosage: 5/500MG EVERY 4-6 HOURS - PRN
     Route: 048
  9. OSCAL D /00944201/ [Concomitant]
     Route: 048
  10. LOPRESSOR [Concomitant]
     Route: 048
  11. LAMICTAL [Concomitant]
     Route: 048

REACTIONS (2)
  - GRANULOCYTOPENIA [None]
  - LEUKOPENIA [None]
